FAERS Safety Report 24252624 (Version 1)
Quarter: 2024Q3

REPORT INFORMATION
  Report Type: Spontaneous
  Country: CA (occurrence: CA)
  Receive Date: 20240827
  Receipt Date: 20240827
  Transmission Date: 20241016
  Serious: Yes (Hospitalization)
  Sender: CELLTRION
  Company Number: CA-PFIZER INC-202400237565

PATIENT

DRUGS (2)
  1. INFLECTRA [Suspect]
     Active Substance: INFLIXIMAB-DYYB
     Indication: Colitis ulcerative
     Dosage: 540 MG, W 0, 2, 6, THEN EVERY 8 WEEKS DISCONTINUED
     Route: 042
     Dates: start: 20240807, end: 202408
  2. INFLECTRA [Suspect]
     Active Substance: INFLIXIMAB-DYYB
     Dosage: 495 MG, 0, 2, 6, THEN EVERY 8 WEEKS (AFTER 7 DAYS, W2)
     Route: 042
     Dates: start: 20240814, end: 20240814

REACTIONS (2)
  - Drug ineffective [Unknown]
  - Off label use [Unknown]

NARRATIVE: CASE EVENT DATE: 20240801
